FAERS Safety Report 13109173 (Version 1)
Quarter: 2017Q1

REPORT INFORMATION
  Report Type: Spontaneous
  Country: JM (occurrence: JM)
  Receive Date: 20170112
  Receipt Date: 20170112
  Transmission Date: 20170428
  Serious: Yes (Death, Other)
  Sender: FDA-Public Use
  Company Number: JM-B.I. PHARMACEUTICALS,INC./RIDGEFIELD-2017-BI-001758

PATIENT
  Sex: Male

DRUGS (1)
  1. PRADAXA [Suspect]
     Active Substance: DABIGATRAN ETEXILATE MESYLATE
     Indication: PRODUCT USED FOR UNKNOWN INDICATION
     Route: 065

REACTIONS (3)
  - Pulmonary embolism [Unknown]
  - Haemorrhage [Unknown]
  - Death [Fatal]
